FAERS Safety Report 8256512-6 (Version None)
Quarter: 2012Q1

REPORT INFORMATION
  Report Type: 
  Country: None (occurrence: None)
  Receive Date: 20120330
  Receipt Date: 20120323
  Transmission Date: 20120608
  Serious: Yes (Life-Threatening, Hospitalization)
  Sender: FDA-Public Use
  Company Number: 2012SP015587

PATIENT
  Age: 55 Year
  Sex: Male

DRUGS (4)
  1. RIBAVIRIN [Suspect]
     Indication: CHRONIC HEPATITIS
     Dosage: 1200 MG;QD;PO
     Route: 048
     Dates: start: 20111217, end: 20120314
  2. ACETAMINOPHEN [Concomitant]
  3. VICTRELIS [Suspect]
     Indication: CHRONIC HEPATITIS
     Dosage: 800 MG;Q8H;PO
     Route: 048
     Dates: start: 20111217, end: 20120314
  4. PEGINTERFERON ALFA-2B [Suspect]
     Indication: CHRONIC HEPATITIS
     Dosage: 120 MCG;QW;SC
     Route: 058
     Dates: start: 20111111, end: 20120314

REACTIONS (2)
  - NEUTROPENIA [None]
  - PYREXIA [None]
